FAERS Safety Report 9435142 (Version 1)
Quarter: 2013Q3

REPORT INFORMATION
  Report Type: Spontaneous
  Country: US (occurrence: US)
  Receive Date: 20130801
  Receipt Date: 20130801
  Transmission Date: 20140515
  Serious: No
  Sender: FDA-Public Use
  Company Number: US-US-EMD SERONO, INC.-7104048

PATIENT
  Age: 69 Year
  Sex: Male

DRUGS (3)
  1. REBIF [Suspect]
     Indication: MULTIPLE SCLEROSIS
     Route: 058
     Dates: start: 20100624
  2. LAXATIVE [Concomitant]
     Indication: BOWEL MOVEMENT IRREGULARITY
  3. STOOL SOFTNER [Concomitant]
     Indication: BOWEL MOVEMENT IRREGULARITY

REACTIONS (5)
  - Gastric infection [Recovered/Resolved]
  - Weight decreased [Unknown]
  - Decreased appetite [Unknown]
  - Hiccups [Unknown]
  - Rectal haemorrhage [Recovered/Resolved]
